FAERS Safety Report 10451959 (Version 2)
Quarter: 2014Q3

REPORT INFORMATION
  Report Type: Spontaneous
  Country: US (occurrence: US)
  Receive Date: 20140915
  Receipt Date: 20140926
  Transmission Date: 20150326
  Serious: Yes (Other)
  Sender: FDA-Public Use
  Company Number: US-BEH-2014044900

PATIENT
  Age: 36 Year
  Sex: Female

DRUGS (8)
  1. ZOLOFT [Concomitant]
     Active Substance: SERTRALINE HYDROCHLORIDE
  2. FLOMAX [Concomitant]
     Active Substance: TAMSULOSIN HYDROCHLORIDE
  3. HIZENTRA [Suspect]
     Active Substance: HUMAN IMMUNOGLOBULIN G
     Dosage: PHARMACIST REPORTED 8GM + 6GM WEEKLY (TOTAL 14 GM); PHYSICIAN REPORTED 8GM + 7GM WEEKLY
     Route: 058
     Dates: start: 20140627
  4. NORVASC [Concomitant]
     Active Substance: AMLODIPINE BESYLATE
  5. HIZENTRA [Suspect]
     Active Substance: HUMAN IMMUNOGLOBULIN G
     Indication: IMMUNODEFICIENCY COMMON VARIABLE
     Dosage: PHARMACIST REPORTED 8GM + 6GM WEEKLY (TOTAL 14 GM); PHYSICIAN REPORTED 8GM + 7GM WEEKLY
     Route: 058
     Dates: start: 20140627
  6. BENTYL [Concomitant]
     Active Substance: DICYCLOMINE HYDROCHLORIDE
  7. ZONEGRAN [Concomitant]
     Active Substance: ZONISAMIDE
  8. PROAIR HFA [Concomitant]
     Active Substance: ALBUTEROL SULFATE

REACTIONS (2)
  - Loss of consciousness [Not Recovered/Not Resolved]
  - Convulsion [Not Recovered/Not Resolved]

NARRATIVE: CASE EVENT DATE: 20140627
